FAERS Safety Report 25539960 (Version 2)
Quarter: 2025Q4

REPORT INFORMATION
  Report Type: Spontaneous
  Country: US (occurrence: US)
  Receive Date: 20250710
  Receipt Date: 20251007
  Transmission Date: 20260117
  Serious: No
  Sender: ABBVIE
  Company Number: US-ABBVIE-6362708

PATIENT

DRUGS (2)
  1. SKYRIZI [Suspect]
     Active Substance: RISANKIZUMAB-RZAA
     Indication: Psoriasis
     Route: 058
     Dates: start: 202505
  2. SKYRIZI [Suspect]
     Active Substance: RISANKIZUMAB-RZAA
     Indication: Psoriatic arthropathy

REACTIONS (11)
  - Peripheral swelling [Unknown]
  - Pain in extremity [Unknown]
  - Nail deformation [Unknown]
  - Blister [Unknown]
  - Unevaluable event [Unknown]
  - Skin exfoliation [Unknown]
  - Skin irritation [Unknown]
  - Neck pain [Unknown]
  - Skin disorder [Unknown]
  - Arthropathy [Unknown]
  - Fatigue [Unknown]

NARRATIVE: CASE EVENT DATE: 20250101
